FAERS Safety Report 6960598-6 (Version None)
Quarter: 2010Q3

REPORT INFORMATION
  Report Type: 
  Country: None (occurrence: None)
  Receive Date: 20100901
  Receipt Date: 20100819
  Transmission Date: 20110219
  Serious: Yes (Hospitalization)
  Sender: FDA-Public Use
  Company Number: US-ELI_LILLY_AND_COMPANY-US201008006264

PATIENT
  Sex: Female

DRUGS (10)
  1. FORTEO [Suspect]
     Indication: OSTEOPOROSIS
     Dosage: 20 UG, DAILY (1/D)
     Dates: start: 20090701
  2. PREVACID [Concomitant]
  3. ZETIA [Concomitant]
  4. PAXIL [Concomitant]
     Dosage: 37.5 MG, UNK
  5. AMBIEN [Concomitant]
     Dosage: 5 MG, UNK
  6. RESTASIS [Concomitant]
     Indication: DRY EYE
  7. METFORMIN [Concomitant]
  8. WELCHOL [Concomitant]
  9. CENTRUM SILVER [Concomitant]
  10. SLOW-FE [Concomitant]

REACTIONS (7)
  - BACK DISORDER [None]
  - BACK PAIN [None]
  - BRADYPHRENIA [None]
  - HERPES ZOSTER [None]
  - INSOMNIA [None]
  - NERVE COMPRESSION [None]
  - SKIN DISCOLOURATION [None]
